FAERS Safety Report 23591743 (Version 2)
Quarter: 2024Q1

REPORT INFORMATION
  Report Type: Spontaneous
  Country: US (occurrence: US)
  Receive Date: 20240304
  Receipt Date: 20240307
  Transmission Date: 20240410
  Serious: No
  Sender: FDA-Public Use
  Company Number: US-PFIZER INC-PV202300035093

PATIENT
  Age: 72 Year
  Sex: Female

DRUGS (1)
  1. PREMARIN [Suspect]
     Active Substance: ESTROGENS, CONJUGATED
     Dosage: APPLY SMALL AMOUNT TO EXTERIOR VULVA/VAGINAL AREA DAILY

REACTIONS (4)
  - Viral infection [Unknown]
  - Product prescribing error [Unknown]
  - Off label use [Unknown]
  - Off label use [Unknown]
